FAERS Safety Report 5545249-X (Version None)
Quarter: 2007Q4

REPORT INFORMATION
  Report Type: 
  Country: None (occurrence: None)
  Receive Date: 20071123
  Receipt Date: 20070516
  Transmission Date: 20080405
  Serious: Yes (Other)
  Sender: FDA-Public Use
  Company Number: 37207

PATIENT
  Age: 55 Year
  Sex: Female
  Weight: 84.369 kg

DRUGS (1)
  1. LEUCOVORIN CALCIUM [Suspect]
     Indication: COLON CANCER STAGE III
     Dosage: 768MG IV
     Route: 042
     Dates: start: 20060919

REACTIONS (1)
  - DIZZINESS [None]
